FAERS Safety Report 5255209-4 (Version None)
Quarter: 2007Q1

REPORT INFORMATION
  Report Type: 
  Country: None (occurrence: None)
  Receive Date: 20070305
  Receipt Date: 20070222
  Transmission Date: 20070707
  Serious: Yes (Hospitalization, Other)
  Sender: FDA-Public Use
  Company Number: 2006GB01824

PATIENT
  Age: 25225 Day
  Sex: Female
  Weight: 85.5 kg

DRUGS (8)
  1. CRESTOR [Suspect]
     Indication: CARDIOVASCULAR EVENT PROPHYLAXIS
     Route: 048
     Dates: start: 20060109, end: 20061101
  2. AMLODIPINE [Concomitant]
  3. DOXAZOSIN MESYLATE [Concomitant]
  4. TROSPIUM [Concomitant]
  5. CODYDRAMOL [Concomitant]
  6. VAGIFEM [Concomitant]
  7. MELOXICAM [Concomitant]
  8. LISINOPRIL [Concomitant]

REACTIONS (2)
  - HYDRONEPHROSIS [None]
  - URETERIC CANCER [None]
